FAERS Safety Report 10017608 (Version 2)
Quarter: 2014Q1

REPORT INFORMATION
  Report Type: Spontaneous
  Country: US (occurrence: US)
  Receive Date: 20140318
  Receipt Date: 20140318
  Transmission Date: 20141002
  Serious: No
  Sender: FDA-Public Use
  Company Number: US-BRISTOL-MYERS SQUIBB COMPANY-17388935

PATIENT
  Age: 36 Year
  Sex: Male

DRUGS (5)
  1. ERBITUX [Suspect]
     Indication: PENILE CANCER
     Dosage: APPROXIMATELY IN NOV-2012
     Dates: start: 2012
  2. CISPLATIN [Concomitant]
  3. 5-FLUOROURACIL [Concomitant]
  4. MS CONTIN [Concomitant]
  5. OXYCODONE [Concomitant]

REACTIONS (2)
  - Dry skin [Unknown]
  - Off label use [Unknown]
